FAERS Safety Report 9085314 (Version 3)
Quarter: 2019Q4

REPORT INFORMATION
  Report Type: Spontaneous
  Country: US (occurrence: US)
  Receive Date: 20130131
  Receipt Date: 20191212
  Transmission Date: 20200122
  Serious: No
  Sender: FDA-Public Use
  Company Number: US-PFIZER INC-2013038574

PATIENT
  Age: 58 Year
  Sex: Female

DRUGS (1)
  1. LYRICA [Suspect]
     Active Substance: PREGABALIN
     Indication: RHEUMATOID ARTHRITIS
     Dosage: 150 MG, 4X/DAY
     Route: 048

REACTIONS (4)
  - Pain in extremity [Unknown]
  - Product use in unapproved indication [Unknown]
  - Off label use [Unknown]
  - Condition aggravated [Unknown]
